FAERS Safety Report 9720983 (Version 4)
Quarter: 2014Q1

REPORT INFORMATION
  Report Type: Spontaneous
  Country: JP (occurrence: JP)
  Receive Date: 20131129
  Receipt Date: 20140303
  Transmission Date: 20141002
  Serious: Yes (Death)
  Sender: FDA-Public Use
  Company Number: JP-SA-2013SA122314

PATIENT
  Age: 73 Year
  Sex: Male
  Weight: 61 kg

DRUGS (7)
  1. LASIX [Suspect]
     Indication: CARDIAC FAILURE
     Route: 048
     Dates: start: 20130212, end: 20130226
  2. PLAVIX [Concomitant]
     Indication: MYOCARDIAL INFARCTION
     Route: 048
     Dates: start: 20110907, end: 20130226
  3. PREMINENT [Concomitant]
     Indication: HYPERTENSION
     Route: 048
     Dates: start: 20090623, end: 20130226
  4. TAKEPRON OD [Concomitant]
     Indication: GASTROOESOPHAGEAL REFLUX DISEASE
     Route: 048
     Dates: start: 20110927, end: 20130226
  5. CALBLOCK [Concomitant]
     Indication: HYPERTENSION
     Route: 048
     Dates: start: 20090623, end: 20130226
  6. BAYASPIRIN [Concomitant]
     Indication: ANGINA PECTORIS
     Route: 048
     Dates: start: 20040831, end: 20130226
  7. CRESTOR [Concomitant]
     Indication: HYPERLIPIDAEMIA
     Route: 048
     Dates: start: 20090818, end: 20130226

REACTIONS (4)
  - Interstitial lung disease [Fatal]
  - Dyspnoea [Fatal]
  - Cough [Fatal]
  - Tachypnoea [Fatal]
